FAERS Safety Report 8111201-3 (Version None)
Quarter: 2012Q1

REPORT INFORMATION
  Report Type: 
  Country: None (occurrence: None)
  Receive Date: 20120203
  Receipt Date: 20110617
  Transmission Date: 20120608
  Serious: No
  Sender: FDA-Public Use
  Company Number: US-GLAXOSMITHKLINE-A0931881A

PATIENT

DRUGS (2)
  1. LAMICTAL [Suspect]
     Indication: MAJOR DEPRESSION
     Route: 065
  2. WELLBUTRIN XL [Concomitant]

REACTIONS (2)
  - AGITATION [None]
  - PARANOIA [None]
